FAERS Safety Report 7014910-2 (Version None)
Quarter: 2010Q3

REPORT INFORMATION
  Report Type: 
  Country: None (occurrence: None)
  Receive Date: 20100927
  Receipt Date: 20100111
  Transmission Date: 20110219
  Serious: No
  Sender: FDA-Public Use
  Company Number: US-ASTRAZENECA-2008UW26284

PATIENT
  Age: 55 Year
  Sex: Female
  Weight: 70.3 kg

DRUGS (4)
  1. ARIMIDEX [Suspect]
     Indication: PROPHYLAXIS
     Route: 048
     Dates: start: 20080701, end: 20081101
  2. VITAMIN D [Concomitant]
     Dosage: 400 IU
  3. LOVAZA [Concomitant]
  4. VITAMIN SUPPLIMENTS [Concomitant]

REACTIONS (4)
  - ALOPECIA [None]
  - INSOMNIA [None]
  - SEBACEOUS GLANDS OVERACTIVITY [None]
  - SKIN WRINKLING [None]
